FAERS Safety Report 13436840 (Version 1)
Quarter: 2017Q2

REPORT INFORMATION
  Report Type: Spontaneous
  Country: US (occurrence: US)
  Receive Date: 20170413
  Receipt Date: 20170413
  Transmission Date: 20170830
  Serious: Yes (Hospitalization)
  Sender: FDA-Public Use
  Company Number: US-VIFOR (INTERNATIONAL) INC.-VIT-2017-03910

PATIENT
  Sex: Female

DRUGS (18)
  1. GENERLAC [Concomitant]
     Active Substance: LACTULOSE
  2. VESICARE [Concomitant]
     Active Substance: SOLIFENACIN SUCCINATE
  3. KIONEX [Concomitant]
     Active Substance: SODIUM POLYSTYRENE SULFONATE
  4. CIPROFLOXACIN. [Concomitant]
     Active Substance: CIPROFLOXACIN
  5. LANTUS [Concomitant]
     Active Substance: INSULIN GLARGINE
  6. PHENYTOIN. [Concomitant]
     Active Substance: PHENYTOIN
  7. PARACETAMOL [Concomitant]
     Active Substance: ACETAMINOPHEN
  8. NITROFURANTOIN. [Concomitant]
     Active Substance: NITROFURANTOIN
  9. HYDRALAZINE [Concomitant]
     Active Substance: HYDRALAZINE HYDROCHLORIDE
  10. GABAPENTIN. [Concomitant]
     Active Substance: GABAPENTIN
  11. CLONIDINE. [Concomitant]
     Active Substance: CLONIDINE
  12. PRAVASTATIN. [Concomitant]
     Active Substance: PRAVASTATIN
  13. AMLODIPINE [Concomitant]
     Active Substance: AMLODIPINE BESYLATE
  14. FUROSEMIDE. [Concomitant]
     Active Substance: FUROSEMIDE
  15. PROMETHAZINE [Concomitant]
     Active Substance: PROMETHAZINE\PROMETHAZINE HYDROCHLORIDE
  16. VELTASSA [Suspect]
     Active Substance: PATIROMER
     Indication: HYPERKALAEMIA
     Route: 048
     Dates: start: 20160603
  17. LYRICA [Concomitant]
     Active Substance: PREGABALIN
  18. SODIUM BICARBONATE. [Concomitant]
     Active Substance: SODIUM BICARBONATE

REACTIONS (1)
  - Hospitalisation [Not Recovered/Not Resolved]

NARRATIVE: CASE EVENT DATE: 2017
